FAERS Safety Report 7335404-0 (Version None)
Quarter: 2011Q1

REPORT INFORMATION
  Report Type: 
  Country: None (occurrence: None)
  Receive Date: 20110307
  Receipt Date: 20110222
  Transmission Date: 20110831
  Serious: Yes (Hospitalization)
  Sender: FDA-Public Use
  Company Number: PHHY2011SE15234

PATIENT
  Sex: Male

DRUGS (3)
  1. TETRALYSAL [Suspect]
     Indication: ROSACEA
     Dosage: UNK
     Route: 048
     Dates: end: 20101026
  2. CIPROFLOXACIN [Suspect]
     Indication: CHOLERA
     Dosage: UNK
     Route: 048
     Dates: end: 20101024
  3. RIFAMPICIN SANDOZ [Suspect]
     Indication: CHOLERA
     Dosage: UNK
     Route: 048
     Dates: end: 20101001

REACTIONS (5)
  - PRURITUS [None]
  - STAPHYLOCOCCAL INFECTION [None]
  - RASH [None]
  - DEVICE RELATED INFECTION [None]
  - MUSCULOSKELETAL DISCOMFORT [None]
